FAERS Safety Report 21257653 (Version 2)
Quarter: 2022Q3

REPORT INFORMATION
  Report Type: Spontaneous
  Country: CO (occurrence: CO)
  Receive Date: 20220826
  Receipt Date: 20220930
  Transmission Date: 20221026
  Serious: Yes (Other)
  Sender: FDA-Public Use
  Company Number: CO-PFIZER INC-PV202200047815

PATIENT
  Sex: Female

DRUGS (1)
  1. ENBREL [Suspect]
     Active Substance: ETANERCEPT
     Indication: Rheumatoid arthritis
     Dosage: 50 MILLIGRAM, QWK
     Route: 058
     Dates: start: 20220812

REACTIONS (31)
  - Sjogren^s syndrome [Unknown]
  - Glaucoma [Unknown]
  - Rheumatic fever [Unknown]
  - Systemic lupus erythematosus [Unknown]
  - Dysstasia [Unknown]
  - Pyrexia [Unknown]
  - Erythema [Unknown]
  - Abdominal pain upper [Unknown]
  - Dyspepsia [Unknown]
  - Diarrhoea [Unknown]
  - Arthralgia [Unknown]
  - Asthenia [Unknown]
  - Pain [Unknown]
  - Cardiac disorder [Unknown]
  - Osteitis [Unknown]
  - Osteoarthritis [Unknown]
  - Fibromyalgia [Unknown]
  - Blood pressure abnormal [Unknown]
  - Abdominal distension [Unknown]
  - Vomiting [Unknown]
  - Depressed mood [Unknown]
  - Breast mass [Unknown]
  - Dry skin [Unknown]
  - Limb deformity [Unknown]
  - Spinal disorder [Unknown]
  - Cartilage atrophy [Unknown]
  - Tongue disorder [Unknown]
  - Dehydration [Unknown]
  - Onychalgia [Unknown]
  - Nail discomfort [Unknown]
  - Nail discolouration [Unknown]

NARRATIVE: CASE EVENT DATE: 20220801
